FAERS Safety Report 24078929 (Version 1)
Quarter: 2024Q3

REPORT INFORMATION
  Report Type: Spontaneous
  Country: JP (occurrence: JP)
  Receive Date: 20240711
  Receipt Date: 20240711
  Transmission Date: 20241017
  Serious: Yes (Hospitalization)
  Sender: ROCHE
  Company Number: JP-CHUGAI-2024021993

PATIENT
  Age: 47 Year
  Sex: Female
  Weight: 48.6 kg

DRUGS (12)
  1. POLIVY [Suspect]
     Active Substance: POLATUZUMAB VEDOTIN-PIIQ
     Indication: Lymphoma
     Dosage: 78 MG/DAY
     Route: 042
     Dates: start: 20230322, end: 20230403
  2. URSODIOL [Concomitant]
     Active Substance: URSODIOL
     Dosage: UNK
     Route: 050
     Dates: end: 20230907
  3. URSODIOL [Concomitant]
     Active Substance: URSODIOL
     Dosage: UNK
     Route: 050
     Dates: start: 20230919
  4. GRANISETRON HYDROCHLORIDE [Concomitant]
     Active Substance: GRANISETRON HYDROCHLORIDE
     Dosage: UNK
     Route: 065
  5. POLARAMINE [Concomitant]
     Active Substance: DEXCHLORPHENIRAMINE MALEATE
     Dosage: UNK
     Route: 065
  6. SOLU-MEDROL [Concomitant]
     Active Substance: METHYLPREDNISOLONE SODIUM SUCCINATE
     Dosage: UNK
     Route: 065
  7. RITUXIMAB [Concomitant]
     Active Substance: RITUXIMAB
     Dosage: UNK
     Route: 065
  8. LEVOFLOXACIN HEMIHYDRATE [Concomitant]
     Active Substance: LEVOFLOXACIN
     Dosage: UNK
     Route: 050
  9. ESOMEPRAZOLE MAGNESIUM [Concomitant]
     Active Substance: ESOMEPRAZOLE MAGNESIUM
     Dosage: UNK
     Route: 050
  10. SULFAMETHOXAZOLE\TRIMETHOPRIM [Concomitant]
     Active Substance: SULFAMETHOXAZOLE\TRIMETHOPRIM
     Dosage: UNK
     Route: 050
  11. VFEND [Concomitant]
     Active Substance: VORICONAZOLE
     Dosage: UNK
     Route: 050
  12. PREDNISOLONE [Concomitant]
     Active Substance: PREDNISOLONE
     Dosage: UNK
     Route: 050

REACTIONS (3)
  - Cholangitis sclerosing [Recovering/Resolving]
  - Infusion related reaction [Unknown]
  - Herpes zoster [Unknown]

NARRATIVE: CASE EVENT DATE: 20230322
